FAERS Safety Report 10617435 (Version 2)
Quarter: 2014Q4

REPORT INFORMATION
  Report Type: Spontaneous
  Country: IT (occurrence: IT)
  Receive Date: 20141201
  Receipt Date: 20141215
  Transmission Date: 20150529
  Serious: Yes (Hospitalization)
  Sender: FDA-Public Use
  Company Number: IT-TEVA-523901ISR

PATIENT
  Age: 74 Year
  Sex: Female

DRUGS (4)
  1. OLANZAPINA LILLY - 10 MG COMPRESSE RIVESTITE - ELI LILLY ITALIA S.P.A. [Suspect]
     Active Substance: OLANZAPINE
     Indication: DRUG ABUSE
     Dosage: 20 MG TOTAL
     Route: 048
     Dates: start: 20141022, end: 20141022
  2. GABAPENTIN. [Suspect]
     Active Substance: GABAPENTIN
     Indication: DRUG ABUSE
     Dosage: 900 MG TOTAL
     Route: 048
     Dates: start: 20141022, end: 20141022
  3. NORVASC [Suspect]
     Active Substance: AMLODIPINE BESYLATE
     Indication: DRUG ABUSE
     Dosage: 20 MG TOTAL
     Route: 048
     Dates: start: 20141022, end: 20141022
  4. TRIATEC [Concomitant]
     Active Substance: RAMIPRIL
     Indication: HYPERTENSION
     Route: 048

REACTIONS (2)
  - Sopor [Recovered/Resolved]
  - Drug abuse [Recovered/Resolved]

NARRATIVE: CASE EVENT DATE: 20141022
